FAERS Safety Report 4810496-9 (Version None)
Quarter: 2005Q4

REPORT INFORMATION
  Report Type: 
  Country: None (occurrence: None)
  Receive Date: 20051025
  Receipt Date: 20051025
  Transmission Date: 20060501
  Serious: Yes (Life-Threatening)
  Sender: FDA-Public Use
  Company Number: None

PATIENT
  Age: 45 Year
  Sex: Female
  Weight: 72 kg

DRUGS (5)
  1. VIREAD [Suspect]
     Indication: HIV TEST POSITIVE
     Dosage: 300MG DAILY PO
     Route: 048
  2. ZERIT [Suspect]
     Indication: HIV TEST POSITIVE
     Dosage: 40MG TWICE DAILY PO
     Route: 048
  3. DIOVAN [Concomitant]
  4. FUZEON [Concomitant]
  5. KALETRA [Concomitant]

REACTIONS (9)
  - ABDOMINAL TENDERNESS [None]
  - ACIDOSIS [None]
  - LEUKOCYTOSIS [None]
  - NAUSEA [None]
  - ORAL INTAKE REDUCED [None]
  - PAIN [None]
  - PANCREATITIS ACUTE [None]
  - VOMITING [None]
  - WEIGHT DECREASED [None]
